FAERS Safety Report 7166431-4 (Version None)
Quarter: 2010Q4

REPORT INFORMATION
  Report Type: 
  Country: None (occurrence: None)
  Receive Date: 20101216
  Receipt Date: 20101207
  Transmission Date: 20110411
  Serious: Yes (Hospitalization, Other)
  Sender: FDA-Public Use
  Company Number: JP-BRISTOL-MYERS SQUIBB COMPANY-15115108

PATIENT
  Age: 59 Year
  Sex: Male
  Weight: 58 kg

DRUGS (18)
  1. BARACLUDE [Suspect]
     Indication: HEPATIC CIRRHOSIS
     Route: 048
     Dates: start: 20100407
  2. ATELEC [Concomitant]
     Indication: HYPERTENSION
     Route: 048
     Dates: start: 20091009
  3. URSO 250 [Concomitant]
     Indication: CHOLELITHIASIS
     Route: 048
     Dates: start: 20001128
  4. OMEPRAL [Concomitant]
     Indication: GASTRIC ULCER
     Route: 048
     Dates: start: 20090325
  5. GASMOTIN [Concomitant]
     Indication: GASTRITIS
     Route: 048
     Dates: start: 20011023
  6. CONIEL [Concomitant]
     Indication: HYPERTENSION
     Route: 048
     Dates: start: 20091120, end: 20100712
  7. ZYLORIC [Concomitant]
     Indication: HYPERURICAEMIA
     Route: 048
     Dates: start: 19990914
  8. SELBEX [Concomitant]
     Indication: GASTRITIS
     Route: 048
  9. DIOVAN [Concomitant]
     Indication: HYPERTENSION
     Route: 048
     Dates: start: 20051130
  10. FOSRENOL [Concomitant]
     Indication: HYPERPHOSPHATAEMIA
     Route: 048
     Dates: start: 20090325
  11. MYONAL [Concomitant]
     Indication: BACK PAIN
     Route: 048
     Dates: start: 20051215
  12. EURODIN [Concomitant]
     Indication: INSOMNIA
     Route: 048
     Dates: start: 20080308, end: 20100611
  13. LACTULOSE [Concomitant]
     Indication: HYPERAMMONAEMIA
     Route: 048
     Dates: start: 20090325
  14. CINACALCET HYDROCHLORIDE [Concomitant]
     Indication: HYPERPARATHYROIDISM SECONDARY
     Route: 048
     Dates: start: 20080213
  15. LAXOBERON [Concomitant]
     Indication: CONSTIPATION
     Route: 048
     Dates: start: 20070401
  16. ALLEGRA [Concomitant]
     Indication: PRURITUS
     Route: 048
     Dates: start: 20060101
  17. FORSENID [Concomitant]
     Indication: CONSTIPATION
     Route: 048
     Dates: start: 20060406
  18. LENDORMIN [Concomitant]
     Indication: INSOMNIA
     Dates: start: 20100612

REACTIONS (2)
  - ASCITES [None]
  - PERITONITIS [None]
